FAERS Safety Report 5047926-6 (Version None)
Quarter: 2006Q3

REPORT INFORMATION
  Report Type: 
  Country: None (occurrence: None)
  Receive Date: 20060711
  Receipt Date: 20060706
  Transmission Date: 20061208
  Serious: Yes (Other)
  Sender: FDA-Public Use
  Company Number: IT-GLAXOSMITHKLINE-B0430408A

PATIENT
  Age: 61 Year
  Sex: Male

DRUGS (2)
  1. MALARONE [Suspect]
     Indication: MALARIA PROPHYLAXIS
     Route: 048
     Dates: start: 20060108, end: 20060121
  2. CLARITHROMYCIN [Concomitant]
     Indication: TOOTH ABSCESS
     Dosage: 500MG PER DAY
     Route: 048
     Dates: start: 20060108, end: 20060115

REACTIONS (1)
  - PEMPHIGOID [None]
